FAERS Safety Report 10224990 (Version 2)
Quarter: 2014Q2

REPORT INFORMATION
  Report Type: Spontaneous
  Country: CA (occurrence: CA)
  Receive Date: 20140609
  Receipt Date: 20140609
  Transmission Date: 20141212
  Serious: Yes (Hospitalization)
  Sender: FDA-Public Use
  Company Number: CA-PFIZER INC-2009235952

PATIENT
  Age: 54 Year
  Sex: Female
  Weight: 95.24 kg

DRUGS (1)
  1. CYKLOKAPRON [Suspect]
     Indication: MENORRHAGIA
     Dosage: 500 MG, 2X/DAY
     Route: 048
     Dates: start: 20090514, end: 20090514

REACTIONS (5)
  - Headache [Recovered/Resolved]
  - Chills [Recovered/Resolved]
  - Photophobia [Recovered/Resolved]
  - Dizziness [Recovered/Resolved]
  - Nausea [Recovered/Resolved]
